FAERS Safety Report 5267748-0 (Version None)
Quarter: 2007Q1

REPORT INFORMATION
  Report Type: 
  Country: None (occurrence: None)
  Receive Date: 20070316
  Receipt Date: 20070306
  Transmission Date: 20070707
  Serious: Yes (Other)
  Sender: FDA-Public Use
  Company Number: JP-PFIZER INC-2007015186

PATIENT
  Sex: Female

DRUGS (2)
  1. NORVASC [Suspect]
     Indication: HYPERTENSION
     Dosage: DAILY DOSE:5MG-FREQ:DAILY
     Route: 048
  2. ARIMIDEX [Concomitant]
     Indication: BREAST CANCER
     Dosage: DAILY DOSE:1MG-FREQ:DAILY
     Route: 048

REACTIONS (2)
  - BREAST CANCER [None]
  - INCORRECT DOSE ADMINISTERED [None]
